FAERS Safety Report 6635842-5 (Version None)
Quarter: 2010Q1

REPORT INFORMATION
  Report Type: 
  Country: None (occurrence: None)
  Receive Date: 20100316
  Receipt Date: 20100304
  Transmission Date: 20100710
  Serious: Yes (Hospitalization)
  Sender: FDA-Public Use
  Company Number: CA-JNJFOC-20100302086

PATIENT
  Sex: Female
  Weight: 51.26 kg

DRUGS (3)
  1. SIMPONI [Suspect]
     Indication: RHEUMATOID ARTHRITIS
     Route: 058
  2. SIMPONI [Suspect]
     Route: 058
  3. METHOTREXATE [Concomitant]
     Route: 058

REACTIONS (2)
  - PLEURAL EFFUSION [None]
  - RHEUMATOID LUNG [None]
